FAERS Safety Report 5476703-7 (Version None)
Quarter: 2007Q4

REPORT INFORMATION
  Report Type: 
  Country: None (occurrence: None)
  Receive Date: 20071004
  Receipt Date: 20070705
  Transmission Date: 20080405
  Serious: Yes (Disabling)
  Sender: FDA-Public Use
  Company Number: A0661932A

PATIENT
  Age: 8 Year
  Sex: Female

DRUGS (6)
  1. ADVAIR DISKUS 100/50 [Suspect]
     Indication: ASTHMA
     Dosage: 2PUFF TWICE PER DAY
     Route: 055
     Dates: start: 20070101
  2. SINGULAIR [Suspect]
     Indication: ASTHMA
     Dosage: 5MG PER DAY
     Route: 048
     Dates: start: 20050101, end: 20070601
  3. SPIRIVA [Concomitant]
  4. ZYRTEC [Concomitant]
  5. INTAL [Concomitant]
  6. ALBUTEROL [Concomitant]

REACTIONS (2)
  - HEADACHE [None]
  - VOMITING [None]
